FAERS Safety Report 6045313-5 (Version None)
Quarter: 2009Q1

REPORT INFORMATION
  Report Type: 
  Country: None (occurrence: None)
  Receive Date: 20090121
  Receipt Date: 20090115
  Transmission Date: 20090719
  Serious: Yes (Hospitalization)
  Sender: FDA-Public Use
  Company Number: FR-ASTRAZENECA-2009CG00199

PATIENT
  Age: 28659 Day
  Sex: Male

DRUGS (4)
  1. ZESTRIL [Suspect]
     Route: 048
     Dates: start: 20010101, end: 20070928
  2. METFORMIN [Suspect]
     Indication: TYPE 2 DIABETES MELLITUS
     Route: 048
     Dates: start: 20010101, end: 20070928
  3. SIMVASTATIN [Concomitant]
     Dates: start: 20010101
  4. GLICLAZIDE [Concomitant]
     Dates: start: 20010101

REACTIONS (8)
  - DEHYDRATION [None]
  - DIARRHOEA [None]
  - DRUG LEVEL INCREASED [None]
  - DYSPNOEA EXERTIONAL [None]
  - GASTROENTERITIS [None]
  - LACTIC ACIDOSIS [None]
  - RENAL FAILURE ACUTE [None]
  - TREMOR [None]
